FAERS Safety Report 10735301 (Version 1)
Quarter: 2015Q1

REPORT INFORMATION
  Report Type: Spontaneous
  Country: US (occurrence: US)
  Receive Date: 20150125
  Receipt Date: 20150125
  Transmission Date: 20150721
  Serious: Yes (Life-Threatening, Hospitalization)
  Sender: FDA-Public Use
  Company Number: US-JNJFOC-20150107497

PATIENT
  Age: 61 Year
  Sex: Female
  Weight: 49.9 kg

DRUGS (2)
  1. BENZODIAZEPINES NOS [Suspect]
     Active Substance: BENZODIAZEPINE
     Indication: SUICIDE ATTEMPT
     Route: 048
  2. TYLENOL PM [Suspect]
     Active Substance: ACETAMINOPHEN\DIPHENHYDRAMINE
     Indication: SUICIDE ATTEMPT
     Route: 048

REACTIONS (4)
  - Electrolyte imbalance [Unknown]
  - Coagulopathy [Unknown]
  - Agitation [Recovered/Resolved]
  - Intentional overdose [Unknown]
